FAERS Safety Report 4366603-8 (Version None)
Quarter: 2004Q2

REPORT INFORMATION
  Report Type: 
  Country: None (occurrence: None)
  Receive Date: 20040527
  Receipt Date: 20040524
  Transmission Date: 20050107
  Serious: Yes (Hospitalization, Other)
  Sender: FDA-Public Use
  Company Number: FR-BRISTOL-MYERS SQUIBB COMPANY-12594495

PATIENT
  Age: 40 Year
  Sex: Male

DRUGS (5)
  1. EFAVIRENZ [Suspect]
     Indication: HIV INFECTION
     Dates: start: 20010801
  2. STAVUDINE [Suspect]
     Indication: HIV INFECTION
     Dates: start: 20010801
  3. PENTAFUSIDE [Suspect]
     Indication: HIV INFECTION
     Dates: start: 20010801
  4. LAMIVUDINE [Suspect]
     Indication: HIV INFECTION
     Dates: start: 20010801
  5. TENOFOVIR [Suspect]
     Indication: HIV INFECTION
     Dates: start: 20010801

REACTIONS (3)
  - BRAIN ABSCESS [None]
  - CYTOMEGALOVIRUS CHORIORETINITIS [None]
  - STATUS EPILEPTICUS [None]
